FAERS Safety Report 7573494-0 (Version None)
Quarter: 2011Q2

REPORT INFORMATION
  Report Type: 
  Country: None (occurrence: None)
  Receive Date: 20110621
  Receipt Date: 20110520
  Transmission Date: 20111010
  Serious: Yes (Other)
  Sender: FDA-Public Use
  Company Number: 20110423

PATIENT
  Age: 35 Year
  Sex: Female
  Weight: 107.0489 kg

DRUGS (2)
  1. PROGESTEROL INJ [Suspect]
     Dosage: 0.1 CC, WHEAL, INTRADERMALLY INTRADERMAL
     Route: 023
     Dates: start: 20110518, end: 20110518
  2. PROGESTEROL INJ [Suspect]
     Indication: INFERTILITY
     Dosage: 50 MG DAILY, INTRAMUSCULAR
     Route: 030
     Dates: start: 20110208, end: 20110228

REACTIONS (5)
  - INJECTION SITE RASH [None]
  - PREGNANCY [None]
  - DRUG HYPERSENSITIVITY [None]
  - OFF LABEL USE [None]
  - ABORTION SPONTANEOUS [None]
